FAERS Safety Report 19246045 (Version 1)
Quarter: 2021Q2

REPORT INFORMATION
  Report Type: Report from Study
  Country: US (occurrence: US)
  Receive Date: 20210512
  Receipt Date: 20210512
  Transmission Date: 20210717
  Serious: Yes (Other)
  Sender: FDA-Public Use
  Company Number: US-UCBSA-2021014284

PATIENT
  Age: 66 Year
  Sex: Female
  Weight: 152 kg

DRUGS (4)
  1. GABAPENTIN. [Concomitant]
     Active Substance: GABAPENTIN
     Indication: NEOPLASM MALIGNANT
     Dosage: 500 MILLIGRAM, 2X/DAY (BID)
     Dates: start: 201502
  2. SYNTHROID [Concomitant]
     Active Substance: LEVOTHYROXINE SODIUM
     Indication: NEOPLASM MALIGNANT
     Dosage: 15 MILLIGRAM, EV 2 DAYS (QOD)
     Dates: start: 201502
  3. GABAPENTIN. [Concomitant]
     Active Substance: GABAPENTIN
     Dosage: 400 MILLIGRAM, ONCE DAILY (QD)
  4. LACOSAMIDE. [Suspect]
     Active Substance: LACOSAMIDE
     Indication: SEIZURE
     Dosage: 100 MILLIGRAM, 2X/DAY (BID)
     Dates: start: 2015

REACTIONS (7)
  - COVID-19 immunisation [Unknown]
  - Fall [Unknown]
  - Recurrent cancer [Unknown]
  - Vaccination complication [Recovered/Resolved]
  - Hypotension [Unknown]
  - Syncope [Recovered/Resolved]
  - Hypersensitivity [Recovered/Resolved]

NARRATIVE: CASE EVENT DATE: 2021
